FAERS Safety Report 6080435-4 (Version None)
Quarter: 2009Q1

REPORT INFORMATION
  Report Type: 
  Country: None (occurrence: None)
  Receive Date: 20090217
  Receipt Date: 20090209
  Transmission Date: 20090719
  Serious: Yes (Other)
  Sender: FDA-Public Use
  Company Number: PHHY2009ES04605

PATIENT
  Age: 56 Year
  Sex: Female

DRUGS (5)
  1. GLEEVEC [Suspect]
     Indication: CHRONIC MYELOID LEUKAEMIA
     Dosage: 400 MG, QD
     Dates: start: 20030708
  2. GLEEVEC [Suspect]
     Dosage: 800 MG
     Dates: start: 20060711
  3. GLEEVEC [Suspect]
     Dosage: 600 MG
     Dates: start: 20080201
  4. IRON [Concomitant]
  5. FORTASEC [Concomitant]

REACTIONS (4)
  - ATRIAL FIBRILLATION [None]
  - DIARRHOEA [None]
  - LEUKAEMIA RECURRENT [None]
  - OCULAR TOXICITY [None]
